FAERS Safety Report 16530682 (Version 2)
Quarter: 2019Q3

REPORT INFORMATION
  Report Type: Spontaneous
  Country: GB (occurrence: GB)
  Receive Date: 20190704
  Receipt Date: 20190708
  Transmission Date: 20191004
  Serious: Yes (Other)
  Sender: FDA-Public Use
  Company Number: GB-JNJFOC-20190634200

PATIENT
  Age: 15 Year
  Sex: Female

DRUGS (1)
  1. PARACETAMOL [Suspect]
     Active Substance: ACETAMINOPHEN
     Indication: PRODUCT USED FOR UNKNOWN INDICATION
     Route: 065

REACTIONS (3)
  - Encephalopathy [Unknown]
  - Overdose [Unknown]
  - Gamma-glutamyltransferase increased [Unknown]
